FAERS Safety Report 4654825-8 (Version None)
Quarter: 2005Q2

REPORT INFORMATION
  Report Type: 
  Country: None (occurrence: None)
  Receive Date: 20050506
  Receipt Date: 20050412
  Transmission Date: 20051028
  Serious: Yes (Hospitalization)
  Sender: FDA-Public Use
  Company Number: AU-BRISTOL-MYERS SQUIBB COMPANY-12931226

PATIENT
  Age: 56 Year
  Sex: Female
  Weight: 69 kg

DRUGS (3)
  1. CETUXIMAB [Suspect]
     Indication: COLORECTAL CANCER METASTATIC
     Dosage: INITIATED ON 08-MAR-2005 (4 WEEKS)
     Route: 042
  2. IBUPROFEN [Concomitant]
     Indication: PAIN
     Dates: start: 20050221
  3. FLUCONAZOLE [Concomitant]
     Indication: INFECTION
     Dates: start: 20050201

REACTIONS (5)
  - BLOOD CREATININE INCREASED [None]
  - CATHETER RELATED COMPLICATION [None]
  - INFECTION [None]
  - PAIN [None]
  - RENAL FAILURE [None]
